FAERS Safety Report 4381124-4 (Version None)
Quarter: 2004Q2

REPORT INFORMATION
  Report Type: 
  Country: None (occurrence: None)
  Receive Date: 20040616
  Receipt Date: 20040602
  Transmission Date: 20050107
  Serious: Yes (Death)
  Sender: FDA-Public Use
  Company Number: USA040568208

PATIENT
  Age: 60 Year
  Sex: Female

DRUGS (3)
  1. XIGRIS [Suspect]
     Indication: SEPSIS
     Dates: start: 20040519, end: 20040520
  2. NOREPINEPHRINE BITARTRATE [Concomitant]
  3. VASOPRESSIN INJECTION [Concomitant]

REACTIONS (1)
  - CARDIAC DISORDER [None]
